FAERS Safety Report 7128368-6 (Version None)
Quarter: 2010Q4

REPORT INFORMATION
  Report Type: 
  Country: None (occurrence: None)
  Receive Date: 20101130
  Receipt Date: 20101122
  Transmission Date: 20110411
  Serious: Yes (Hospitalization, Other)
  Sender: FDA-Public Use
  Company Number: PHHY2010PL72582

PATIENT
  Sex: Male
  Weight: 60 kg

DRUGS (3)
  1. MYFORTIC [Suspect]
     Indication: IMMUNOSUPPRESSION
     Dosage: 1080 MG/DAY
     Route: 048
     Dates: start: 20100611
  2. TACROLIMUS [Concomitant]
     Indication: IMMUNOSUPPRESSION
     Dosage: 6 MG
     Dates: start: 20100611
  3. ENCORTON [Concomitant]
     Indication: IMMUNOSUPPRESSION
     Dosage: 5 MG
     Dates: start: 20100720

REACTIONS (4)
  - BENIGN PROSTATIC HYPERPLASIA [None]
  - C-REACTIVE PROTEIN INCREASED [None]
  - URINARY TRACT INFECTION [None]
  - URINE ANALYSIS ABNORMAL [None]
